FAERS Safety Report 5489498-8 (Version None)
Quarter: 2007Q4

REPORT INFORMATION
  Report Type: 
  Country: None (occurrence: None)
  Receive Date: 20071016
  Receipt Date: 20071016
  Transmission Date: 20080405
  Serious: Yes (Hospitalization)
  Sender: FDA-Public Use
  Company Number: None

PATIENT
  Age: 30 Year
  Sex: Female
  Weight: 85 kg

DRUGS (13)
  1. ENOXAPARIN SODIUM [Suspect]
     Indication: DEEP VEIN THROMBOSIS
     Dosage: 80MG BID PO SQ
     Route: 058
     Dates: start: 20070202, end: 20070204
  2. ENOXAPARIN SODIUM [Suspect]
     Indication: PULMONARY EMBOLISM
     Dosage: 80MG BID PO SQ
     Route: 058
     Dates: start: 20070202, end: 20070204
  3. WARFARIN SODIUM [Suspect]
     Indication: DEEP VEIN THROMBOSIS
     Dosage: 5MG DAILY PO
     Route: 048
     Dates: start: 20061201, end: 20070204
  4. WARFARIN SODIUM [Suspect]
     Indication: PULMONARY EMBOLISM
     Dosage: 5MG DAILY PO
     Route: 048
     Dates: start: 20061201, end: 20070204
  5. DICYCLOMINE [Concomitant]
  6. METOCLOPRAMIDE [Concomitant]
  7. HYDROCODONE BITARTRATE AND ACETAMINOPHEN [Concomitant]
  8. HALOPERIDOL [Concomitant]
  9. PROMETHAZINE [Concomitant]
  10. ALPRAZOLAM [Concomitant]
  11. GABAPENTIN [Concomitant]
  12. ESOMEPRAZOLE [Concomitant]
  13. OXYCODONE HCL EXTENDED-RELEASE [Concomitant]

REACTIONS (10)
  - CATHETER SITE INFECTION [None]
  - DEEP VEIN THROMBOSIS [None]
  - DIZZINESS [None]
  - HYPOVOLAEMIA [None]
  - INTERNATIONAL NORMALISED RATIO DECREASED [None]
  - PROTEIN C DEFICIENCY [None]
  - PROTEIN S DEFICIENCY [None]
  - PULMONARY EMBOLISM [None]
  - THROMBOSIS [None]
  - VAGINAL HAEMORRHAGE [None]
